FAERS Safety Report 14798240 (Version 1)
Quarter: 2018Q2

REPORT INFORMATION
  Report Type: Spontaneous
  Country: US (occurrence: US)
  Receive Date: 20180415
  Receipt Date: 20180415
  Transmission Date: 20180711
  Serious: Yes (Hospitalization)
  Sender: FDA-Public Use
  Company Number: None

PATIENT
  Age: 51 Year
  Sex: Male
  Weight: 94.5 kg

DRUGS (8)
  1. PRAVASTATIN. [Concomitant]
     Active Substance: PRAVASTATIN
  2. ASPIRIN. [Concomitant]
     Active Substance: ASPIRIN
  3. FISH OIL [Concomitant]
     Active Substance: FISH OIL
  4. INVOKAMET [Suspect]
     Active Substance: CANAGLIFLOZIN\METFORMIN HYDROCHLORIDE
     Indication: DIABETES MELLITUS
     Dosage: ?          OTHER STRENGTH:1000 METFORMIN/150;QUANTITY:1 TABLET(S);?
     Route: 048
     Dates: end: 20170906
  5. MULTIVITAMIN [Concomitant]
     Active Substance: VITAMINS
  6. TOUJEO [Concomitant]
     Active Substance: INSULIN GLARGINE
  7. LOSARTAN. [Concomitant]
     Active Substance: LOSARTAN
  8. COQ10 [Concomitant]
     Active Substance: UBIDECARENONE

REACTIONS (5)
  - Blood pressure decreased [None]
  - Head injury [None]
  - Dehydration [None]
  - Syncope [None]
  - Cold sweat [None]

NARRATIVE: CASE EVENT DATE: 20170906
